FAERS Safety Report 10405640 (Version 1)
Quarter: 2014Q3

REPORT INFORMATION
  Report Type: Other
  Country: GB (occurrence: GB)
  Receive Date: 20140825
  Receipt Date: 20140825
  Transmission Date: 20150326
  Serious: Yes (Death, Hospitalization)
  Sender: FDA-Public Use
  Company Number: GB-TARO PHARMACEUTICALS U.S.A., INC-2014SUN01905

PATIENT
  Age: 74 Year
  Sex: Male
  Weight: 60 kg

DRUGS (12)
  1. CYANOCOBALAMIN. [Concomitant]
     Active Substance: CYANOCOBALAMIN
  2. ALFACALCIDOL [Concomitant]
     Active Substance: ALFACALCIDOL
  3. DIGOXIN. [Concomitant]
     Active Substance: DIGOXIN
  4. DILTIAZEM [Concomitant]
     Active Substance: DILTIAZEM
  5. ALLOPURINOL. [Concomitant]
     Active Substance: ALLOPURINOL
  6. AZACITIDINE. [Concomitant]
     Active Substance: AZACITIDINE
  7. SIMVASTATIN. [Concomitant]
     Active Substance: SIMVASTATIN
  8. WARFARIN [Suspect]
     Active Substance: WARFARIN
     Indication: ATRIAL FIBRILLATION
     Route: 048
     Dates: end: 20140610
  9. DOXAZOSIN [Concomitant]
     Active Substance: DOXAZOSIN\DOXAZOSIN MESYLATE
  10. FRUSEMIDE [Concomitant]
     Active Substance: FUROSEMIDE
  11. SODIUM BICARBONATE. [Concomitant]
     Active Substance: SODIUM BICARBONATE
  12. FOLIC ACID. [Concomitant]
     Active Substance: FOLIC ACID

REACTIONS (5)
  - Penile necrosis [Unknown]
  - Calciphylaxis [Fatal]
  - Calcinosis [Unknown]
  - Renal impairment [Unknown]
  - Extremity necrosis [Unknown]

NARRATIVE: CASE EVENT DATE: 20140610
